FAERS Safety Report 19367880 (Version 1)
Quarter: 2021Q2

REPORT INFORMATION
  Report Type: Spontaneous
  Country: CN (occurrence: CN)
  Receive Date: 20210603
  Receipt Date: 20210603
  Transmission Date: 20210717
  Serious: Yes (Other)
  Sender: FDA-Public Use
  Company Number: CN-PFIZER INC-2021577219

PATIENT
  Age: 76 Year
  Sex: Female
  Weight: 65.5 kg

DRUGS (1)
  1. ZYVOX [Suspect]
     Active Substance: LINEZOLID
     Indication: CERVIX CARCINOMA
     Dosage: 300 MG, 2X/DAY
     Route: 041
     Dates: start: 20210510, end: 20210511

REACTIONS (3)
  - Off label use [Unknown]
  - Blood glucose increased [Unknown]
  - Asphyxia [Recovering/Resolving]

NARRATIVE: CASE EVENT DATE: 20210510
